FAERS Safety Report 18550702 (Version 1)
Quarter: 2020Q4

REPORT INFORMATION
  Report Type: Spontaneous
  Country: DE (occurrence: DE)
  Receive Date: 20201126
  Receipt Date: 20201126
  Transmission Date: 20210114
  Serious: Yes (Congenital Anomaly, Other)
  Sender: FDA-Public Use
  Company Number: DE-DEXPHARM-20201069

PATIENT
  Age: 0 Year
  Sex: Female
  Weight: 2.7 kg

DRUGS (3)
  1. VENLAFAXINE [Suspect]
     Active Substance: VENLAFAXINE HYDROCHLORIDE
     Indication: DEPRESSION
     Dosage: 150 [MG/D]
     Route: 064
     Dates: start: 20190311
  2. TETESEPT FOLIC ACID 800 [Concomitant]
     Indication: PROPHYLAXIS OF NEURAL TUBE DEFECT
     Dosage: 0.8 [MG/D]
  3. VENLAFAXINE [Suspect]
     Active Substance: VENLAFAXINE HYDROCHLORIDE
     Indication: DEPRESSION
     Dosage: DOSAGE REDUCED TO 75MG DAILY DURING THE THIRD TRIMESTER
     Route: 064
     Dates: end: 20191210

REACTIONS (1)
  - Fallot^s tetralogy [Not Recovered/Not Resolved]
